FAERS Safety Report 9871285 (Version 1)
Quarter: 2014Q1

REPORT INFORMATION
  Report Type: Report from Study
  Country: US (occurrence: US)
  Receive Date: 20140205
  Receipt Date: 20140205
  Transmission Date: 20141002
  Serious: Yes (Other)
  Sender: FDA-Public Use
  Company Number: US-US-EMD SERONO, INC.-7266672

PATIENT
  Sex: Female

DRUGS (2)
  1. REBIF [Suspect]
     Indication: MULTIPLE SCLEROSIS
     Route: 058
     Dates: end: 201306
  2. REBIF [Suspect]
     Route: 058
     Dates: start: 20140128

REACTIONS (5)
  - Colon cancer [Unknown]
  - Diabetes mellitus [Unknown]
  - Extremity necrosis [Unknown]
  - Hepatic mass [Unknown]
  - Thyroid mass [Unknown]
